FAERS Safety Report 9157987 (Version 1)
Quarter: 2013Q1

REPORT INFORMATION
  Report Type: Spontaneous
  Country: HU (occurrence: HU)
  Receive Date: 20130312
  Receipt Date: 20130312
  Transmission Date: 20140127
  Serious: Yes (Other)
  Sender: FDA-Public Use
  Company Number: HU-JNJFOC-20130217388

PATIENT
  Sex: 0

DRUGS (1)
  1. INFLIXIMAB, RECOMBINANT [Suspect]
     Indication: INFLAMMATORY BOWEL DISEASE
     Route: 042

REACTIONS (6)
  - Lupus-like syndrome [Unknown]
  - Autoimmune disorder [Unknown]
  - Antinuclear antibody [Unknown]
  - Double stranded DNA antibody [Unknown]
  - Hypersensitivity [Unknown]
  - Drug ineffective [Unknown]
